FAERS Safety Report 9671934 (Version 2)
Quarter: 2013Q4

REPORT INFORMATION
  Report Type: Spontaneous
  Country: NL (occurrence: None)
  Receive Date: 20131104
  Receipt Date: 20131108
  Transmission Date: 20140711
  Serious: Yes (Other)
  Sender: FDA-Public Use
  Company Number: AUR-APL-2013-09115

PATIENT
  Age: 73 Year
  Sex: Female

DRUGS (7)
  1. PANTOPRAZOLE (PANTOPRAZOLE) [Suspect]
     Indication: PRODUCT USED FOR UNKNOWN INDICATION
  2. METFORMIN (METFORMIN) [Suspect]
     Indication: PRODUCT USED FOR UNKNOWN INDICATION
  3. LORAZEPAM (LORAZEPAM) [Suspect]
     Indication: PRODUCT USED FOR UNKNOWN INDICATION
  4. CLOMIPRAMINE (CLOMIPRAMINE) [Suspect]
     Indication: PRODUCT USED FOR UNKNOWN INDICATION
     Dosage: 1 IN 1 D, UNKNOWN
  5. ENALAPRIL [Suspect]
     Indication: PRODUCT USED FOR UNKNOWN INDICATION
  6. FLUPENTIXOL [Suspect]
     Indication: PRODUCT USED FOR UNKNOWN INDICATION
  7. HYDROCHLOROTHIAZIDE (HYDROCHLOROTHIAZIDE) [Concomitant]

REACTIONS (2)
  - Hyponatraemia [None]
  - Hypovolaemia [None]
